FAERS Safety Report 19618045 (Version 1)
Quarter: 2021Q3

REPORT INFORMATION
  Report Type: Spontaneous
  Country: US (occurrence: US)
  Receive Date: 20210727
  Receipt Date: 20210727
  Transmission Date: 20211014
  Serious: No
  Sender: FDA-Public Use
  Company Number: US-BRISTOL-MYERS SQUIBB COMPANY-BMS-2021-071754

PATIENT
  Age: 65 Year
  Sex: Female

DRUGS (2)
  1. YERVOY [Suspect]
     Active Substance: IPILIMUMAB
     Indication: SOFT TISSUE SARCOMA
     Dosage: 61.7 MILLIGRAM, Q3WK
     Route: 042
     Dates: start: 20210315, end: 202104
  2. OPDIVO [Suspect]
     Active Substance: NIVOLUMAB
     Indication: SOFT TISSUE SARCOMA
     Dosage: 185.1 MILLIGRAM, Q3WK
     Route: 042
     Dates: start: 20210315, end: 202104

REACTIONS (1)
  - Intentional product use issue [Unknown]
